FAERS Safety Report 7732882-X (Version None)
Quarter: 2011Q3

REPORT INFORMATION
  Report Type: 
  Country: None (occurrence: None)
  Receive Date: 20110902
  Receipt Date: 20110902
  Transmission Date: 20111222
  Serious: Yes (Other)
  Sender: FDA-Public Use
  Company Number: None

PATIENT
  Age: 70 Year
  Sex: Male
  Weight: 115.9 kg

DRUGS (16)
  1. PERCOGESIC [Concomitant]
  2. CYANOCOBALAMIN [Concomitant]
  3. ERGOCALCIFEROL [Suspect]
     Indication: VITAMIN D DEFICIENCY
     Dosage: EVERY TWO WEEKS X 4 ORAL (047)
     Route: 048
     Dates: start: 20110811
  4. EPHRINE [Concomitant]
  5. VERAPAMIL [Concomitant]
  6. VIAGRA [Concomitant]
  7. DEXAMETHASONE SOD PHOSPHATE [DECADRON] [Concomitant]
  8. EXCEDRIN PM [Concomitant]
  9. NOVOLOG [Concomitant]
  10. POTASSIUM CHLORIDE [Concomitant]
  11. HYDROCORTISONE [CORTEF] [Concomitant]
  12. CHOLECALCIFEROL (VITAMIN D3) [Concomitant]
  13. ANDROGEL [Concomitant]
  14. FLORAJEN [Concomitant]
  15. BIOTIN [Concomitant]
  16. NEURONTIN [Concomitant]

REACTIONS (4)
  - ABNORMAL SENSATION IN EYE [None]
  - INSOMNIA [None]
  - FEELING ABNORMAL [None]
  - HALLUCINATION, AUDITORY [None]
